FAERS Safety Report 5510122-X (Version None)
Quarter: 2007Q4

REPORT INFORMATION
  Report Type: 
  Country: None (occurrence: None)
  Receive Date: 20071108
  Receipt Date: 20071029
  Transmission Date: 20080405
  Serious: Yes (Hospitalization, Disabling)
  Sender: FDA-Public Use
  Company Number: CH-AMGEN-US240205

PATIENT
  Age: 27 Year
  Sex: Male

DRUGS (1)
  1. ENBREL [Suspect]
     Indication: PSORIASIS
     Route: 058
     Dates: start: 20070625, end: 20070802

REACTIONS (7)
  - FACIAL PARESIS [None]
  - HEADACHE [None]
  - HERPES VIRUS INFECTION [None]
  - NYSTAGMUS [None]
  - PLEOCYTOSIS [None]
  - PYREXIA [None]
  - TINNITUS [None]
